FAERS Safety Report 20011788 (Version 4)
Quarter: 2021Q4

REPORT INFORMATION
  Report Type: Spontaneous
  Country: CZ (occurrence: CZ)
  Receive Date: 20211029
  Receipt Date: 20211220
  Transmission Date: 20220303
  Serious: Yes (Life-Threatening, Hospitalization, Other)
  Sender: FDA-Public Use
  Company Number: CZ-MYLANLABS-2021M1076748

PATIENT
  Age: 49 Year
  Sex: Male

DRUGS (21)
  1. OXALIPLATIN [Suspect]
     Active Substance: OXALIPLATIN
     Indication: Rectal cancer
     Dosage: UNK (AS PART OF FOLFOX TREATMENT)
     Dates: start: 201810, end: 201906
  2. OXALIPLATIN [Suspect]
     Active Substance: OXALIPLATIN
     Indication: Colorectal cancer metastatic
  3. CAPECITABINE [Suspect]
     Active Substance: CAPECITABINE
     Indication: Rectal adenocarcinoma
     Dosage: 3000 MILLIGRAM, QD
     Dates: start: 20171218, end: 20180215
  4. CAPECITABINE [Suspect]
     Active Substance: CAPECITABINE
     Indication: Colorectal adenocarcinoma
     Dosage: UNK
  5. IRINOTECAN [Suspect]
     Active Substance: IRINOTECAN
     Indication: Rectal adenocarcinoma
     Dosage: (OCT-2020) UNK (AS PART OF FOLFIRI TREATMENT)
     Route: 065
     Dates: end: 202010
  6. IRINOTECAN [Suspect]
     Active Substance: IRINOTECAN
     Indication: Colorectal cancer metastatic
  7. IRINOTECAN [Suspect]
     Active Substance: IRINOTECAN
     Indication: Colorectal adenocarcinoma
  8. LEUCOVORIN CALCIUM [Suspect]
     Active Substance: LEUCOVORIN CALCIUM
     Indication: Rectal adenocarcinoma
     Dosage: UNK (AS PART OF FOLFOX TREATMENT)
     Dates: start: 201810, end: 201906
  9. LEUCOVORIN CALCIUM [Suspect]
     Active Substance: LEUCOVORIN CALCIUM
     Indication: Malignant neoplasm progression
  10. FLUOROURACIL [Suspect]
     Active Substance: FLUOROURACIL
     Indication: Rectal adenocarcinoma
     Dosage: UNK (AS PART OF FOLFOX TREAMENT)
     Dates: start: 201810, end: 201906
  11. FLUOROURACIL [Suspect]
     Active Substance: FLUOROURACIL
     Indication: Malignant neoplasm progression
  12. FLUOROURACIL [Suspect]
     Active Substance: FLUOROURACIL
     Indication: Colorectal cancer metastatic
  13. LEUCOVORIN [Suspect]
     Active Substance: LEUCOVORIN
     Indication: Rectal adenocarcinoma
     Dosage: UNK (OCT-2020) (AS PART OF FOLFIRI TREATMENT)
     Route: 065
     Dates: end: 202010
  14. LEUCOVORIN [Suspect]
     Active Substance: LEUCOVORIN
     Indication: Colorectal cancer metastatic
  15. LEUCOVORIN [Suspect]
     Active Substance: LEUCOVORIN
     Indication: Colorectal adenocarcinoma
  16. FLUOROURACIL [Suspect]
     Active Substance: FLUOROURACIL
     Indication: Rectal adenocarcinoma
     Dosage: UNK (OCT-2020) (AS PART OF FOLFIRI TREATMENT)
     Route: 065
     Dates: end: 202010
  17. FLUOROURACIL [Suspect]
     Active Substance: FLUOROURACIL
     Indication: Colorectal cancer metastatic
  18. FLUOROURACIL [Suspect]
     Active Substance: FLUOROURACIL
     Indication: Colorectal adenocarcinoma
  19. LEUCOVORIN CALCIUM [Suspect]
     Active Substance: LEUCOVORIN CALCIUM
     Indication: Colorectal cancer metastatic
     Dosage: UNK (OCT-2020)(FOLFIRI REGIMEN 1 CYCLE)
     Route: 065
     Dates: end: 202010
  20. ERBITUX [Concomitant]
     Active Substance: CETUXIMAB
     Indication: Rectal adenocarcinoma
     Dosage: UNK
     Route: 065
     Dates: start: 201810, end: 201911
  21. ERBITUX [Concomitant]
     Active Substance: CETUXIMAB
     Indication: Colorectal cancer metastatic
     Dosage: UNK
     Dates: start: 201911

REACTIONS (10)
  - Circulatory collapse [Unknown]
  - Toxic cardiomyopathy [Recovering/Resolving]
  - Vomiting [Unknown]
  - Drug intolerance [Unknown]
  - Cardiac disorder [Recovering/Resolving]
  - Skin toxicity [Unknown]
  - Urogenital disorder [Unknown]
  - Functional gastrointestinal disorder [Unknown]
  - Palpitations [Unknown]
  - Nausea [Unknown]

NARRATIVE: CASE EVENT DATE: 20201001
